FAERS Safety Report 23156094 (Version 3)
Quarter: 2023Q4

REPORT INFORMATION
  Report Type: Spontaneous
  Country: BR (occurrence: BR)
  Receive Date: 20231107
  Receipt Date: 20231204
  Transmission Date: 20240110
  Serious: Yes (Other)
  Sender: FDA-Public Use
  Company Number: BR-SA-SAC20230920001441

PATIENT
  Age: 26 Year
  Sex: Female

DRUGS (3)
  1. SABRIL [Suspect]
     Active Substance: VIGABATRIN
     Indication: Infantile spasms
     Dosage: 4 DF, QD
     Route: 065
     Dates: start: 1998
  2. SABRIL [Suspect]
     Active Substance: VIGABATRIN
     Indication: Lennox-Gastaut syndrome
     Route: 065
  3. DEPAKENE [Concomitant]
     Active Substance: VALPROIC ACID
     Indication: Product used for unknown indication
     Dosage: UNK
     Route: 065
     Dates: start: 1998

REACTIONS (14)
  - Pneumonia aspiration [Recovered/Resolved]
  - Hemiplegia [Not Recovered/Not Resolved]
  - Drug-induced liver injury [Recovering/Resolving]
  - Cataract [Recovered/Resolved]
  - Immunodeficiency [Unknown]
  - Petit mal epilepsy [Unknown]
  - Pleural effusion [Recovered/Resolved]
  - Malaise [Unknown]
  - Platelet count decreased [Recovered/Resolved]
  - Weight decreased [Recovered/Resolved]
  - Anaemia [Unknown]
  - Weight increased [Recovered/Resolved]
  - Poor quality product administered [Unknown]
  - Intentional product misuse [Unknown]

NARRATIVE: CASE EVENT DATE: 19980101
